FAERS Safety Report 17322199 (Version 1)
Quarter: 2020Q1

REPORT INFORMATION
  Report Type: Report from Study
  Country: ZA (occurrence: ZA)
  Receive Date: 20200127
  Receipt Date: 20200127
  Transmission Date: 20200409
  Serious: Yes (Other)
  Sender: FDA-Public Use
  Company Number: ZA-ROCHE-2528342

PATIENT
  Sex: Female

DRUGS (1)
  1. MABTHERA [Suspect]
     Active Substance: RITUXIMAB
     Indication: RHEUMATOID ARTHRITIS
     Dosage: INFUSED ON DAY 0 AND DAY 14
     Route: 041
     Dates: start: 20190715

REACTIONS (2)
  - Rheumatoid arthritis [Unknown]
  - Interstitial lung disease [Unknown]
